FAERS Safety Report 21888505 (Version 2)
Quarter: 2023Q1

REPORT INFORMATION
  Report Type: Spontaneous
  Country: FR (occurrence: FR)
  Receive Date: 20230120
  Receipt Date: 20230124
  Transmission Date: 20230417
  Serious: Yes (Hospitalization, Other)
  Sender: FDA-Public Use
  Company Number: FR-SA-SAC20230118001675

PATIENT
  Age: 85 Year
  Sex: Female
  Weight: 50 kg

DRUGS (18)
  1. LOVENOX [Suspect]
     Active Substance: ENOXAPARIN SODIUM
     Indication: Anticoagulant therapy
     Dosage: UNK
     Route: 058
     Dates: start: 20210605, end: 20210619
  2. AMOXICILLIN [Suspect]
     Active Substance: AMOXICILLIN
     Indication: Product used for unknown indication
     Dosage: UNK
     Route: 048
     Dates: start: 20210528, end: 20210602
  3. CALCIPARINE [Suspect]
     Active Substance: HEPARIN CALCIUM
     Indication: Anticoagulant therapy
     Dosage: UNK
     Route: 058
     Dates: start: 20210602, end: 20210605
  4. PREDNISONE [Suspect]
     Active Substance: PREDNISONE
     Indication: Product used for unknown indication
     Dosage: UNK
     Route: 048
     Dates: start: 20210609, end: 20210611
  5. DEXAMETHASONE [Suspect]
     Active Substance: DEXAMETHASONE
     Indication: Product used for unknown indication
     Dosage: UNK
     Route: 048
     Dates: start: 20210602, end: 20210608
  6. RIVAROXABAN [Suspect]
     Active Substance: RIVAROXABAN
     Indication: Product used for unknown indication
     Dosage: UNK
     Route: 048
     Dates: start: 20210528, end: 20210602
  7. RACECADOTRIL [Suspect]
     Active Substance: RACECADOTRIL
     Indication: Product used for unknown indication
     Dosage: UNK
     Route: 048
     Dates: start: 20210528, end: 20210602
  8. GLYCOPYRRONIUM\INDACATEROL [Concomitant]
     Active Substance: GLYCOPYRRONIUM\INDACATEROL
     Indication: Product used for unknown indication
     Dosage: UNK
     Route: 055
  9. GLYCOPYRRONIUM\INDACATEROL [Concomitant]
     Active Substance: GLYCOPYRRONIUM\INDACATEROL
     Dosage: UNK (85/43)
     Route: 055
  10. DOLIPRANE [Concomitant]
     Active Substance: ACETAMINOPHEN
     Indication: Product used for unknown indication
     Dosage: UNK, PRN
     Route: 048
  11. TELMISARTAN [Concomitant]
     Active Substance: TELMISARTAN
     Indication: Product used for unknown indication
     Dosage: 40 MG, QD
     Route: 048
  12. TELMISARTAN [Concomitant]
     Active Substance: TELMISARTAN
     Route: 048
  13. LEVOFLOXACIN [Concomitant]
     Active Substance: LEVOFLOXACIN
     Dosage: UNK
     Dates: start: 20210617
  14. COLCHICINE [Concomitant]
     Active Substance: COLCHICINE
     Dosage: UNK
     Dates: start: 20210618, end: 20210619
  15. DERMOCAL [Concomitant]
     Dosage: 4 TUBES/DAY
  16. FONDAPARINUX [Concomitant]
     Active Substance: FONDAPARINUX
     Dosage: UNK
  17. OXYGEN [Concomitant]
     Active Substance: OXYGEN
     Dosage: 3 L ON ARRIVAL
  18. OXYGEN [Concomitant]
     Active Substance: OXYGEN
     Dosage: 1 L (DECREASED)

REACTIONS (15)
  - Acute generalised exanthematous pustulosis [Recovering/Resolving]
  - Skin exfoliation [Recovered/Resolved]
  - Acute kidney injury [Unknown]
  - Renal failure [Unknown]
  - Endocarditis [Recovered/Resolved]
  - Hyperleukocytosis [Unknown]
  - Streptococcal bacteraemia [Unknown]
  - Haemodynamic instability [Unknown]
  - Pyrexia [Recovered/Resolved]
  - Pollakiuria [Unknown]
  - Leukocyturia [Unknown]
  - Gout [Recovered/Resolved]
  - Oliguria [Unknown]
  - Tachycardia [Unknown]
  - Normocytic anaemia [Unknown]

NARRATIVE: CASE EVENT DATE: 20210613
